FAERS Safety Report 9438280 (Version 1)
Quarter: 2013Q3

REPORT INFORMATION
  Report Type: Spontaneous
  Country: US (occurrence: US)
  Receive Date: 20130802
  Receipt Date: 20130802
  Transmission Date: 20140515
  Serious: Yes (Other)
  Sender: FDA-Public Use
  Company Number: US-BAXTER-2013BAX030260

PATIENT
  Age: 52 Year
  Sex: Male

DRUGS (2)
  1. DOBUTAMINE HYDROCHLORIDE IN 5% DEXTROSE INJECTION [Suspect]
     Indication: CARDIAC STRESS TEST
     Route: 065
  2. DOBUTAMINE HYDROCHLORIDE IN 5% DEXTROSE INJECTION [Suspect]
     Indication: OFF LABEL USE

REACTIONS (1)
  - Stress cardiomyopathy [Recovered/Resolved]
